FAERS Safety Report 5073346-4 (Version None)
Quarter: 2006Q3

REPORT INFORMATION
  Report Type: 
  Country: None (occurrence: None)
  Receive Date: 20060717
  Receipt Date: 20060215
  Transmission Date: 20061208
  Serious: No
  Sender: FDA-Public Use
  Company Number: 2006000375

PATIENT
  Age: 76 Year
  Sex: Female

DRUGS (5)
  1. TARCEVA [Suspect]
     Indication: NON-SMALL CELL LUNG CANCER
     Dosage: SEE IMAGE
     Route: 048
     Dates: start: 20060108, end: 20060206
  2. TARCEVA [Suspect]
     Indication: NON-SMALL CELL LUNG CANCER
     Dosage: SEE IMAGE
     Route: 048
     Dates: start: 20060303
  3. GLUCOSAMINE (GLUCOSAMINE) [Concomitant]
  4. ZOCOR [Concomitant]
  5. ANACAN(ANACAL) [Concomitant]

REACTIONS (6)
  - DRY EYE [None]
  - FATIGUE [None]
  - IRITIS [None]
  - RASH [None]
  - RASH MACULO-PAPULAR [None]
  - VISION BLURRED [None]
